FAERS Safety Report 6870777-4 (Version None)
Quarter: 2010Q3

REPORT INFORMATION
  Report Type: 
  Country: None (occurrence: None)
  Receive Date: 20100723
  Receipt Date: 20100720
  Transmission Date: 20110219
  Serious: Yes (Death, Hospitalization, Other)
  Sender: FDA-Public Use
  Company Number: US-ASTRAZENECA-2006UW07893

PATIENT
  Age: 528 Month
  Sex: Female
  Weight: 117.5 kg

DRUGS (10)
  1. SEROQUEL [Suspect]
     Indication: DEPRESSION
     Dosage: 25-300 MG, AT NIGHT
     Route: 048
     Dates: start: 20030727
  2. SEROQUEL [Suspect]
     Indication: ANXIETY
     Dosage: 25-300 MG, AT NIGHT
     Route: 048
     Dates: start: 20030727
  3. SEROQUEL [Suspect]
     Indication: MIGRAINE
     Dosage: 25-300 MG, AT NIGHT
     Route: 048
     Dates: start: 20030727
  4. SEROQUEL [Suspect]
     Route: 048
     Dates: start: 20030101, end: 20060812
  5. SEROQUEL [Suspect]
     Route: 048
     Dates: start: 20030101, end: 20060812
  6. SEROQUEL [Suspect]
     Route: 048
     Dates: start: 20030101, end: 20060812
  7. PROZAC [Concomitant]
     Dosage: 20 - 40 MG
     Route: 048
     Dates: start: 20031125, end: 20040425
  8. PAXIL [Concomitant]
     Dates: start: 20040529
  9. ATENOLOL [Concomitant]
     Indication: HYPERTENSION
     Route: 048
     Dates: start: 20030725
  10. ELAVIL [Concomitant]
     Indication: MIGRAINE PROPHYLAXIS
     Route: 048
     Dates: start: 20030729

REACTIONS (5)
  - CEREBROVASCULAR ACCIDENT [None]
  - DEATH [None]
  - DIABETIC KETOACIDOSIS [None]
  - PHARMACOPHOBIA [None]
  - TYPE 2 DIABETES MELLITUS [None]
